FAERS Safety Report 4990986-9 (Version None)
Quarter: 2006Q2

REPORT INFORMATION
  Report Type: 
  Country: None (occurrence: None)
  Receive Date: 20060428
  Receipt Date: 20060417
  Transmission Date: 20061013
  Serious: Yes (Life-Threatening, Hospitalization)
  Sender: FDA-Public Use
  Company Number: 2006051358

PATIENT
  Age: 76 Year
  Sex: Male

DRUGS (13)
  1. DOXORUBICIN HCL [Suspect]
     Indication: HEPATIC NEOPLASM MALIGNANT
     Dosage: 20 MG, INTRA-ARTERIAL
     Route: 013
     Dates: start: 20060119, end: 20060119
  2. SOSEGON (PENTAZOCINE) [Concomitant]
  3. LIPIODOL ULTRA-FLUID (ETHIODIZED OIL_ [Concomitant]
  4. IOPAMIDOL [Concomitant]
  5. SPONGEL (GELATIN) [Concomitant]
  6. METFORMIN HYDROCHLORIDE [Concomitant]
  7. NIRENA (NIFEDIPINE) [Concomitant]
  8. GLIMICRON (GLICLAZIDE) [Concomitant]
  9. ATENOLOL [Concomitant]
  10. NEOPHAGEN (GLYCYRRHIZINATE POTASSIUM [Concomitant]
  11. TATHION (GLUTATHIONE) [Concomitant]
  12. CEFAZOLIN [Concomitant]
  13. URSO 250 [Concomitant]

REACTIONS (5)
  - DIFFICULTY IN WALKING [None]
  - HAEMODIALYSIS [None]
  - OLIGURIA [None]
  - RENAL FAILURE ACUTE [None]
  - RHABDOMYOLYSIS [None]
